FAERS Safety Report 7994769-7 (Version None)
Quarter: 2011Q4

REPORT INFORMATION
  Report Type: 
  Country: None (occurrence: None)
  Receive Date: 20111220
  Receipt Date: 20111214
  Transmission Date: 20120403
  Serious: Yes (Other)
  Sender: FDA-Public Use
  Company Number: GB-PFIZER INC-2011305115

PATIENT
  Age: 59 Year
  Sex: Female

DRUGS (7)
  1. SULFASALAZINE [Suspect]
     Indication: ARTHRITIS
     Dosage: UNK
     Route: 048
     Dates: start: 20110813
  2. AMITRIPTYLINE [Concomitant]
  3. AMLODIPINE [Concomitant]
  4. TRAMADOL HYDROCHLORIDE [Concomitant]
  5. RAMIPRIL [Concomitant]
  6. PROPRANOLOL [Concomitant]
  7. ATORVASTATIN [Concomitant]

REACTIONS (3)
  - DERMATITIS EXFOLIATIVE [None]
  - PYREXIA [None]
  - DRUG RASH WITH EOSINOPHILIA AND SYSTEMIC SYMPTOMS [None]
